FAERS Safety Report 23380018 (Version 1)
Quarter: 2024Q1

REPORT INFORMATION
  Report Type: Report from Study
  Country: US (occurrence: US)
  Receive Date: 20240109
  Receipt Date: 20240109
  Transmission Date: 20240410
  Serious: Yes (Hospitalization)
  Sender: FDA-Public Use
  Company Number: US-ABBVIE-5574565

PATIENT
  Sex: Male

DRUGS (3)
  1. HUMIRA [Suspect]
     Active Substance: ADALIMUMAB
     Indication: Crohn^s disease
     Dosage: MAINTENANCE DOSE
     Route: 058
  2. HUMIRA [Suspect]
     Active Substance: ADALIMUMAB
     Dosage: STARTER DOSE OF HUMIRA
     Route: 058
     Dates: start: 20230901
  3. HUMIRA [Suspect]
     Active Substance: ADALIMUMAB
     Dosage: RAISE THE DOSE
     Route: 058

REACTIONS (3)
  - Illness [Unknown]
  - Headache [Recovering/Resolving]
  - Fatigue [Recovering/Resolving]

NARRATIVE: CASE EVENT DATE: 20230101
